FAERS Safety Report 8531042 (Version 4)
Quarter: 2012Q4

REPORT INFORMATION
  Report Type: 
  Country: US (occurrence: US)
  Receive Date: 20120426
  Receipt Date: 20121001
  Transmission Date: 20130627
  Serious: Yes (Hospitalization, Other)
  Sender: FDA-Public Use
  Company Number: US-BAYER-2012-038769

PATIENT
  Age: 26 Year
  Sex: Female
  Weight: 151.93 kg

DRUGS (11)
  1. YASMIN [Suspect]
     Dosage: UNK
     Dates: start: 200701, end: 200709
  2. YAZ [Suspect]
     Dosage: UNK
     Dates: start: 200711, end: 200902
  3. HYZAAR [Concomitant]
     Dosage: 50-12.5
     Route: 048
     Dates: start: 20080124
  4. AZITHROMYCIN [Concomitant]
     Dosage: 250 mg, UNK
     Dates: start: 20080105
  5. METHYLPREDNISOLONE [Concomitant]
     Dosage: 4 mg, UNK
     Dates: start: 20080107
  6. CIPROFLOXACIN HCL [Concomitant]
     Dosage: 500 mg, UNK
     Dates: start: 20080121
  7. OMEPRAZOLE [Concomitant]
     Dosage: 20 mg, UNK
     Route: 048
     Dates: start: 20080121
  8. OMEPRAZOLE [Concomitant]
     Dosage: UNK
     Dates: start: 20080424
  9. SULFAMETHOXAZOLE [Concomitant]
     Dosage: UNK
     Dates: start: 20080211
  10. CITALOPRAM [Concomitant]
     Dosage: 40 mg, UNK
     Route: 048
     Dates: start: 20080331
  11. MIDOL [ACETYLSALICYLIC ACID,CAFFEINE,CINNAMEDRINE,PHENACETIN] [Concomitant]

REACTIONS (7)
  - Cholelithiasis [None]
  - Cholecystitis chronic [None]
  - Pain [None]
  - Abdominal pain upper [None]
  - Gastrooesophageal reflux disease [None]
  - Hernia [None]
  - Faecal incontinence [None]
